FAERS Safety Report 25806503 (Version 2)
Quarter: 2025Q4

REPORT INFORMATION
  Report Type: Spontaneous
  Country: US (occurrence: US)
  Receive Date: 20250916
  Receipt Date: 20251104
  Transmission Date: 20260118
  Serious: No
  Sender: BAUSCH AND LOMB
  Company Number: US-BAUSCH-BH-2025-017210

PATIENT
  Sex: Female

DRUGS (1)
  1. NASALCROM [Suspect]
     Active Substance: CROMOLYN SODIUM
     Indication: Hypersensitivity
     Route: 045

REACTIONS (4)
  - Throat irritation [Unknown]
  - Cough [Unknown]
  - Product delivery mechanism issue [Unknown]
  - Product physical issue [Unknown]
